FAERS Safety Report 8462658-X (Version None)
Quarter: 2012Q2

REPORT INFORMATION
  Report Type: 
  Country: None (occurrence: None)
  Receive Date: 20120619
  Receipt Date: 20120619
  Transmission Date: 20120825
  Serious: Yes (Hospitalization)
  Sender: FDA-Public Use
  Company Number: None

PATIENT
  Sex: Male
  Weight: 78 kg

DRUGS (1)
  1. DIPHENYLCYCLOPROPENONE [Suspect]
     Indication: ALOPECIA AREATA
     Dates: start: 20120606, end: 20120612

REACTIONS (8)
  - SKIN OEDEMA [None]
  - WHITE BLOOD CELL COUNT INCREASED [None]
  - FACE OEDEMA [None]
  - EOSINOPHIL PERCENTAGE INCREASED [None]
  - BARRETT'S OESOPHAGUS [None]
  - WOUND SECRETION [None]
  - ERYTHEMA [None]
  - SECRETION DISCHARGE [None]
